FAERS Safety Report 6125048-0 (Version None)
Quarter: 2009Q1

REPORT INFORMATION
  Report Type: 
  Country: None (occurrence: None)
  Receive Date: 20090318
  Receipt Date: 20090309
  Transmission Date: 20090719
  Serious: Yes (Death)
  Sender: FDA-Public Use
  Company Number: 2009US000711

PATIENT
  Sex: Male

DRUGS (7)
  1. MYCAMINE [Suspect]
     Indication: DRUG USE FOR UNKNOWN INDICATION
  2. PROCRIT [Concomitant]
  3. CEFEPIME [Concomitant]
  4. NOREPINEPHRINE (NOREPINEPHRINE HYDROCHLORIDE) [Concomitant]
  5. PROTONIX [Concomitant]
  6. DIPRIVAN [Concomitant]
  7. PIPERACILLIN/TAZO. (PIPERACILLIN SODIUM, TAZOBACTAM SODIUM) [Concomitant]

REACTIONS (1)
  - SEPSIS [None]
